FAERS Safety Report 11901539 (Version 1)
Quarter: 2016Q1

REPORT INFORMATION
  Report Type: Report from Study
  Country: US (occurrence: US)
  Receive Date: 20160108
  Receipt Date: 20160108
  Transmission Date: 20160526
  Serious: No
  Sender: FDA-Public Use
  Company Number: US-ABBVIE-15P-163-1472425-00

PATIENT
  Sex: Male
  Weight: 49.94 kg

DRUGS (2)
  1. RIBASPHERE [Concomitant]
     Active Substance: RIBAVIRIN
     Indication: HEPATITIS C
     Route: 048
     Dates: start: 20150902
  2. VIEKIRA PAK [Suspect]
     Active Substance: DASABUVIR\OMBITASVIR\PARITAPREVIR\RITONAVIR
     Indication: CHRONIC HEPATITIS C
     Dosage: 2 PINK TABS IN AM, 1 BEIGE TAB TWICE A DAY
     Route: 048
     Dates: start: 20150902

REACTIONS (3)
  - Blood bilirubin increased [Unknown]
  - Ocular icterus [Not Recovered/Not Resolved]
  - Alanine aminotransferase increased [Unknown]
